FAERS Safety Report 6368530-3 (Version None)
Quarter: 2009Q3

REPORT INFORMATION
  Report Type: 
  Country: None (occurrence: None)
  Receive Date: 20090917
  Receipt Date: 20090917
  Transmission Date: 20100115
  Serious: No
  Sender: FDA-Public Use
  Company Number: None

PATIENT
  Age: 18 Year
  Sex: Female
  Weight: 43.0917 kg

DRUGS (1)
  1. ORTHO EVRA [Suspect]
     Indication: CONTRACEPTION
     Dosage: MONTHLY TRANSDERMAL
     Route: 062
     Dates: start: 20080101, end: 20080801

REACTIONS (2)
  - ANXIETY [None]
  - MOOD SWINGS [None]
